FAERS Safety Report 25745807 (Version 1)
Quarter: 2025Q3

REPORT INFORMATION
  Report Type: Spontaneous
  Country: US (occurrence: US)
  Receive Date: 20250901
  Receipt Date: 20250901
  Transmission Date: 20251020
  Serious: No
  Sender: LUPIN
  Company Number: US-LUPIN PHARMACEUTICALS INC.-2025-07653

PATIENT
  Age: 58 Year

DRUGS (2)
  1. TOLVAPTAN [Suspect]
     Active Substance: TOLVAPTAN
     Indication: Congenital cystic kidney disease
     Dosage: 45 MILLIGRAM, QD IN THE MORNING
  2. TOLVAPTAN [Suspect]
     Active Substance: TOLVAPTAN
     Indication: Congenital cystic kidney disease
     Dosage: 15 MILLIGRAM, QD IN THE EVENING

REACTIONS (5)
  - COVID-19 [Unknown]
  - Thirst [Unknown]
  - Pollakiuria [Unknown]
  - Gastrooesophageal reflux disease [Unknown]
  - Product dose omission issue [Unknown]
